FAERS Safety Report 8525700-3 (Version None)
Quarter: 2012Q3

REPORT INFORMATION
  Report Type: 
  Country: None (occurrence: None)
  Receive Date: 20120720
  Receipt Date: 20120705
  Transmission Date: 20120928
  Serious: Yes (Hospitalization, Other)
  Sender: FDA-Public Use
  Company Number: JP-009507513-1206USA04582

PATIENT

DRUGS (3)
  1. METFORMIN HCL [Concomitant]
     Indication: DIABETES MELLITUS
     Route: 048
  2. AMARYL [Concomitant]
     Indication: DIABETES MELLITUS
     Route: 048
  3. JANUVIA [Suspect]
     Indication: DIABETES MELLITUS
     Dosage: 50 MG, QD
     Route: 048

REACTIONS (1)
  - PANCYTOPENIA [None]
